FAERS Safety Report 24310363 (Version 2)
Quarter: 2024Q4

REPORT INFORMATION
  Report Type: Spontaneous
  Country: JP (occurrence: JP)
  Receive Date: 20240912
  Receipt Date: 20241008
  Transmission Date: 20250114
  Serious: Yes (Hospitalization, Other)
  Sender: CELLTRION
  Company Number: JP-JPNKAYAKU-2024JPNK041726

PATIENT

DRUGS (2)
  1. ADALIMUMAB [Suspect]
     Active Substance: ADALIMUMAB
     Indication: Colitis ulcerative
     Dosage: 1 INJECTION PEN EVERY 2 WEEKS
     Route: 065
  2. ADALIMUMAB [Suspect]
     Active Substance: ADALIMUMAB
     Indication: Product used for unknown indication
     Dosage: COMBINATION MEDICINE KIT: 80 MG PEN

REACTIONS (4)
  - Intestinal perforation [Unknown]
  - COVID-19 [Unknown]
  - Product quality issue [Unknown]
  - Product storage error [Unknown]
